FAERS Safety Report 4396958-X (Version None)
Quarter: 2004Q3

REPORT INFORMATION
  Report Type: 
  Country: None (occurrence: None)
  Receive Date: 20040709
  Receipt Date: 20040628
  Transmission Date: 20050211
  Serious: Yes (Hospitalization)
  Sender: FDA-Public Use
  Company Number: A044-002-005068

PATIENT
  Age: 82 Year
  Sex: Male
  Weight: 60 kg

DRUGS (3)
  1. ARICEPT [Suspect]
     Indication: DEMENTIA ALZHEIMER'S TYPE
     Dosage: 10 MG 1 IN 1 D, ORAL
     Route: 048
     Dates: start: 20040115, end: 20040517
  2. METOPROLOL TARTRATE [Concomitant]
  3. PLAVIX [Concomitant]

REACTIONS (4)
  - ARRHYTHMIA [None]
  - FALL [None]
  - LOSS OF CONSCIOUSNESS [None]
  - MALAISE [None]
